FAERS Safety Report 24256987 (Version 1)
Quarter: 2024Q3

REPORT INFORMATION
  Report Type: Spontaneous
  Country: US (occurrence: US)
  Receive Date: 20240828
  Receipt Date: 20240828
  Transmission Date: 20241016
  Serious: No
  Sender: SANDOZ
  Company Number: US-SANDOZ-SDZ2024US075644

PATIENT
  Sex: Male

DRUGS (1)
  1. BRIMONIDINE TARTRATE [Suspect]
     Active Substance: BRIMONIDINE TARTRATE
     Indication: Product used for unknown indication
     Dosage: 5 ML, TWICE A DAY
     Route: 047

REACTIONS (2)
  - Blood pressure decreased [Unknown]
  - Mydriasis [Unknown]
